FAERS Safety Report 9423105 (Version 2)
Quarter: 2013Q3

REPORT INFORMATION
  Report Type: Spontaneous
  Country: US (occurrence: US)
  Receive Date: 20130726
  Receipt Date: 20130814
  Transmission Date: 20140515
  Serious: Yes (Death, Hospitalization)
  Sender: FDA-Public Use
  Company Number: US-JNJFOC-20130714660

PATIENT
  Sex: Female

DRUGS (4)
  1. XARELTO [Suspect]
     Indication: CEREBROVASCULAR ACCIDENT PROPHYLAXIS
     Route: 048
     Dates: start: 201304
  2. XARELTO [Suspect]
     Indication: ATRIAL FIBRILLATION
     Route: 048
     Dates: start: 201304
  3. ASA [Concomitant]
     Indication: CORONARY ARTERY DISEASE
     Route: 048
  4. PLAVIX [Concomitant]
     Indication: CAROTID ENDARTERECTOMY
     Route: 048

REACTIONS (2)
  - Death [Fatal]
  - Cardiac tamponade [Recovered/Resolved with Sequelae]
